FAERS Safety Report 19106268 (Version 2)
Quarter: 2023Q2

REPORT INFORMATION
  Report Type: Report from Study
  Country: US (occurrence: US)
  Receive Date: 20210408
  Receipt Date: 20230403
  Transmission Date: 20230721
  Serious: No
  Sender: FDA-Public Use
  Company Number: US-KYOWAKIRIN-2021BKK005284

PATIENT

DRUGS (3)
  1. BUROSUMAB [Suspect]
     Active Substance: BUROSUMAB
     Indication: Hereditary hypophosphataemic rickets
     Dosage: 50 MG
     Route: 065
  2. BUROSUMAB [Suspect]
     Active Substance: BUROSUMAB
     Dosage: 40 MG
     Route: 065
  3. BUROSUMAB [Suspect]
     Active Substance: BUROSUMAB
     Dosage: 50 MG
     Route: 065

REACTIONS (2)
  - Inappropriate schedule of product administration [Unknown]
  - Blood phosphorus decreased [Unknown]

NARRATIVE: CASE EVENT DATE: 20210320
